FAERS Safety Report 12210453 (Version 2)
Quarter: 2016Q2

REPORT INFORMATION
  Report Type: Spontaneous
  Country: GB (occurrence: GB)
  Receive Date: 20160325
  Receipt Date: 20160401
  Transmission Date: 20160815
  Serious: Yes (Congenital Anomaly)
  Sender: FDA-Public Use
  Company Number: GB-WATSON-2016-06148

PATIENT
  Sex: Male
  Weight: 2.7 kg

DRUGS (2)
  1. MIRTAZAPINE (UNKNOWN) [Suspect]
     Active Substance: MIRTAZAPINE
     Indication: PRODUCT USED FOR UNKNOWN INDICATION
     Dosage: UNK
     Route: 064
  2. VENLAFAXINE (UNKNOWN) [Suspect]
     Active Substance: VENLAFAXINE HYDROCHLORIDE
     Indication: PRODUCT USED FOR UNKNOWN INDICATION
     Dosage: UNK
     Route: 064

REACTIONS (2)
  - Exposure during pregnancy [Unknown]
  - Hypotonia neonatal [Not Recovered/Not Resolved]
